FAERS Safety Report 8374059-3 (Version None)
Quarter: 2012Q2

REPORT INFORMATION
  Report Type: 
  Country: None (occurrence: None)
  Receive Date: 20120521
  Receipt Date: 20120510
  Transmission Date: 20120825
  Serious: Yes (Hospitalization)
  Sender: FDA-Public Use
  Company Number: CH-ASTRAZENECA-2012SE30462

PATIENT
  Age: 52 Year
  Sex: Female

DRUGS (15)
  1. LITHIUM CARBONATE [Suspect]
     Route: 048
     Dates: start: 20120324
  2. ACIDUM FOLICUM [Concomitant]
     Route: 048
     Dates: start: 20120201
  3. LORAZEPAM [Concomitant]
  4. LITHIUM CARBONATE [Suspect]
     Route: 048
     Dates: start: 20120404
  5. ZOLPIDEM [Concomitant]
     Route: 048
     Dates: start: 20111216
  6. WELLBUTRIN [Concomitant]
  7. LITHIUM CARBONATE [Suspect]
     Route: 048
     Dates: start: 20120130, end: 20120323
  8. DIAZEPAM [Concomitant]
     Route: 048
     Dates: start: 20120214, end: 20120320
  9. VALDOXAN [Concomitant]
  10. TRAZODONE HCL [Suspect]
     Route: 048
     Dates: start: 20120327
  11. TRAZODONE HCL [Suspect]
     Route: 048
     Dates: start: 20111216, end: 20120326
  12. SEROQUEL [Suspect]
     Route: 048
     Dates: start: 20120104, end: 20120319
  13. VENLAFAXINE [Suspect]
     Route: 048
     Dates: start: 20111216, end: 20120319
  14. ZOLPIDEM [Concomitant]
     Route: 048
  15. MAGNESIUM [Concomitant]
     Indication: MINERAL SUPPLEMENTATION

REACTIONS (1)
  - ELECTROCARDIOGRAM QT PROLONGED [None]
